FAERS Safety Report 8891206 (Version 2)
Quarter: 2012Q4

REPORT INFORMATION
  Report Type: Report from Study
  Country: DE (occurrence: DE)
  Receive Date: 20121107
  Receipt Date: 20121112
  Transmission Date: 20130627
  Serious: Yes (Death, Hospitalization)
  Sender: FDA-Public Use
  Company Number: DE-ROCHE-1150481

PATIENT
  Age: 77 Year
  Sex: Female
  Weight: 60.8 kg

DRUGS (5)
  1. BEVACIZUMAB [Suspect]
     Indication: OVARIAN EPITHELIAL CANCER
     Dosage: date of last dose prior to SAE: 05/oct/2012
     Route: 042
     Dates: start: 20120913
  2. CARBOPLATIN [Suspect]
     Indication: OVARIAN EPITHELIAL CANCER
     Dosage: date of last dose prior to SAE: 05/oct/2012
     Route: 042
     Dates: start: 20120913
  3. PACLITAXEL [Suspect]
     Indication: OVARIAN EPITHELIAL CANCER
     Dosage: date of last dose prior to SAE: 05/oct/2012
     Route: 042
     Dates: start: 20120913
  4. BISOPROLOL [Concomitant]
     Indication: HYPERTENSION
     Route: 048
  5. MORPHINE [Concomitant]

REACTIONS (1)
  - Dehydration [Fatal]
